FAERS Safety Report 7425761-9 (Version None)
Quarter: 2011Q2

REPORT INFORMATION
  Report Type: 
  Country: None (occurrence: None)
  Receive Date: 20110420
  Receipt Date: 20110415
  Transmission Date: 20111010
  Serious: Yes (Other)
  Sender: FDA-Public Use
  Company Number: JP-GENZYME-THYM-1002385

PATIENT

DRUGS (15)
  1. THYMOGLOBULIN [Suspect]
     Indication: BONE MARROW CONDITIONING REGIMEN
     Dosage: 2.5 MG/KG, UNK
     Route: 042
  2. TOTAL BODY IRRADIATION [Concomitant]
     Indication: BONE MARROW CONDITIONING REGIMEN
     Dosage: UNK
     Route: 065
  3. FLUDARA [Suspect]
     Indication: BONE MARROW CONDITIONING REGIMEN
     Dosage: 30 MG/M2, QD
     Route: 065
  4. ANTI-THYMOCYTE GLOBULIN NOS [Suspect]
     Indication: APLASTIC ANAEMIA
     Dosage: 15 MG/KG, QD
     Route: 042
  5. ACYCLOVIR [Concomitant]
     Indication: ANTIVIRAL PROPHYLAXIS
     Route: 065
  6. THYMOGLOBULIN [Suspect]
     Dosage: 2.5 MG/KG, QD
     Route: 042
  7. TACROLIMUS [Concomitant]
     Indication: PROPHYLAXIS AGAINST GRAFT VERSUS HOST DISEASE
     Dosage: 0.02 MG/KG, QD
  8. METHOTREXATE [Concomitant]
     Indication: PROPHYLAXIS AGAINST GRAFT VERSUS HOST DISEASE
     Dosage: 15 MG/M2, QD
     Route: 065
  9. TOTAL BODY IRRADIATION [Concomitant]
     Route: 065
  10. AMPHOTERICIN B [Concomitant]
     Indication: ANTIFUNGAL PROPHYLAXIS
     Route: 065
  11. CYCLOPHOSPHAMIDE [Concomitant]
     Indication: BONE MARROW CONDITIONING REGIMEN
     Dosage: 50 MG/KG, QD
     Route: 065
  12. METHOTREXATE [Concomitant]
     Dosage: 10 MG/M2, QD
     Route: 065
  13. CYCLOSPORINE [Concomitant]
     Indication: IMMUNOSUPPRESSANT DRUG THERAPY
     Route: 065
  14. MELPHALAN [Concomitant]
     Indication: BONE MARROW CONDITIONING REGIMEN
     Dosage: 60 MG/M2, QD
     Route: 065
  15. GRANULOCYTE COLONY STIMULATING FACTOR [Concomitant]
     Indication: PRODUCT USED FOR UNKNOWN INDICATION
     Route: 065

REACTIONS (4)
  - ENGRAFT FAILURE [None]
  - THERAPEUTIC RESPONSE DECREASED [None]
  - DIABETES MELLITUS [None]
  - ENTERITIS [None]
